FAERS Safety Report 10407566 (Version 1)
Quarter: 2014Q3

REPORT INFORMATION
  Report Type: Spontaneous
  Country: US (occurrence: US)
  Receive Date: 20140825
  Receipt Date: 20140825
  Transmission Date: 20150326
  Serious: No
  Sender: FDA-Public Use
  Company Number: US-BRACCO-010233

PATIENT

DRUGS (1)
  1. KINEVAC [Suspect]
     Active Substance: SINCALIDE
     Indication: SCAN MYOCARDIAL PERFUSION
     Dates: start: 20130927, end: 20130927

REACTIONS (2)
  - No adverse event [Unknown]
  - Wrong drug administered [Unknown]

NARRATIVE: CASE EVENT DATE: 20130927
